FAERS Safety Report 9223428 (Version 2)
Quarter: 2013Q2

REPORT INFORMATION
  Report Type: Report from Study
  Country: GB (occurrence: GB)
  Receive Date: 20130410
  Receipt Date: 20130423
  Transmission Date: 20140414
  Serious: Yes (Hospitalization)
  Sender: FDA-Public Use
  Company Number: GB-GLAXOSMITHKLINE-B0881715A

PATIENT
  Age: 65 Year
  Sex: Female
  Weight: 73.8 kg

DRUGS (23)
  1. OFATUMUMAB [Suspect]
     Indication: CHRONIC LYMPHOCYTIC LEUKAEMIA
     Dates: start: 20121219
  2. BENDAMUSTINE [Suspect]
     Indication: CHRONIC LYMPHOCYTIC LEUKAEMIA
     Dates: start: 20121219
  3. PARACETAMOL [Concomitant]
  4. CHLORPHENIRAMINE [Concomitant]
  5. PREDNISOLONE [Concomitant]
  6. ALLOPURINOL [Concomitant]
  7. METOCLOPRAMIDE [Concomitant]
  8. ACICLOVIR [Concomitant]
  9. G-CSF [Concomitant]
  10. LEVOTHYROXINE [Concomitant]
     Dosage: 200MG PER DAY
     Route: 048
  11. SIMVASTATIN [Concomitant]
     Dosage: 20MG PER DAY
     Route: 048
  12. QUININE SULPHATE [Concomitant]
     Dosage: 300MG PER DAY
     Route: 048
  13. SOLIFENACIN SUCCINATE [Concomitant]
     Dosage: 10MG PER DAY
     Route: 048
  14. VITAMIN B [Concomitant]
     Route: 048
  15. BETAHISTINE [Concomitant]
     Dosage: 16MG THREE TIMES PER DAY
     Route: 048
  16. CETIRIZINE [Concomitant]
     Dosage: 10MG PER DAY
     Route: 048
  17. ENOXAPARIN [Concomitant]
     Dosage: 20MG PER DAY
  18. PIPERACILLIN [Concomitant]
     Dosage: 4.5G TWICE PER DAY
     Route: 042
  19. IBUPROFEN [Concomitant]
     Dosage: 400MG THREE TIMES PER DAY
     Route: 048
  20. LANSOPRAZOLE [Concomitant]
     Dosage: 30MG PER DAY
     Route: 048
  21. BUPRENORPHINE [Concomitant]
     Dosage: 5MCG WEEKLY
     Route: 061
  22. CO-CODAMOL [Concomitant]
     Route: 048
  23. CITALOPRAM [Concomitant]
     Dosage: 20MG PER DAY
     Route: 048

REACTIONS (4)
  - Hypotension [Recovered/Resolved with Sequelae]
  - Abdominal infection [Recovered/Resolved with Sequelae]
  - Presyncope [Recovered/Resolved with Sequelae]
  - Circulatory collapse [Recovered/Resolved with Sequelae]
